FAERS Safety Report 16206074 (Version 2)
Quarter: 2019Q2

REPORT INFORMATION
  Report Type: Spontaneous
  Country: US (occurrence: US)
  Receive Date: 20190417
  Receipt Date: 20190521
  Transmission Date: 20190711
  Serious: Yes (Hospitalization, Other)
  Sender: FDA-Public Use
  Company Number: US-B.I. PHARMACEUTICALS,INC./RIDGEFIELD-2019-BI-016721

PATIENT
  Age: 85 Year
  Sex: Female

DRUGS (4)
  1. OXYGEN. [Suspect]
     Active Substance: OXYGEN
     Indication: PRODUCT USED FOR UNKNOWN INDICATION
     Route: 065
  2. SPIRIVA [Suspect]
     Active Substance: TIOTROPIUM BROMIDE MONOHYDRATE
     Indication: CHRONIC OBSTRUCTIVE PULMONARY DISEASE
     Dosage: 1 CAPSULE ONCE A DAY; FORM STRENGTH:18 MCG; FORMULATION: CAPSULE? ACTION(S) TAKEN : DOSE NOT CHANGED
     Route: 055
     Dates: start: 2016
  3. SPIRIVA RESPIMAT [Suspect]
     Active Substance: TIOTROPIUM BROMIDE
     Indication: CHRONIC OBSTRUCTIVE PULMONARY DISEASE
     Dosage: ADMINISTRATION CORRECT? NR(NOT REPORTED) ?ACTION(S) TAKEN WITH PRODUCT: DRUG WITHDRAWN
     Route: 065
     Dates: start: 20190127, end: 20190209
  4. ALBUTEROL. [Concomitant]
     Active Substance: ALBUTEROL
     Indication: PRODUCT USED FOR UNKNOWN INDICATION
     Route: 065

REACTIONS (4)
  - Hypoacusis [Not Recovered/Not Resolved]
  - Chronic obstructive pulmonary disease [Unknown]
  - Small intestinal obstruction [Recovered/Resolved]
  - Tooth erosion [Recovered/Resolved]

NARRATIVE: CASE EVENT DATE: 20190127
